FAERS Safety Report 9109385 (Version 1)
Quarter: 2013Q1

REPORT INFORMATION
  Report Type: Spontaneous
  Country: US (occurrence: US)
  Receive Date: 20130222
  Receipt Date: 20130222
  Transmission Date: 20140127
  Serious: No
  Sender: FDA-Public Use
  Company Number: US-JNJFOC-20130206339

PATIENT
  Sex: Male
  Weight: 48.99 kg

DRUGS (2)
  1. DURAGESIC [Suspect]
     Indication: PAIN
     Route: 062
  2. LORAZEPAM [Concomitant]
     Indication: NERVOUSNESS
     Route: 048

REACTIONS (5)
  - Drug ineffective [Recovered/Resolved]
  - Poor quality drug administered [Recovered/Resolved]
  - Weight fluctuation [Not Recovered/Not Resolved]
  - Inappropriate schedule of drug administration [Not Recovered/Not Resolved]
  - Product quality issue [Recovered/Resolved]
